FAERS Safety Report 16405256 (Version 8)
Quarter: 2019Q4

REPORT INFORMATION
  Report Type: Report from Study
  Country: US (occurrence: US)
  Receive Date: 20190607
  Receipt Date: 20191227
  Transmission Date: 20200122
  Serious: Yes (Hospitalization)
  Sender: FDA-Public Use
  Company Number: US-ACTELION-A-NJ2019-191381

PATIENT
  Sex: Female
  Weight: 108.39 kg

DRUGS (5)
  1. UPTRAVI [Suspect]
     Active Substance: SELEXIPAG
     Dosage: 1200 MCG, BID
     Route: 048
  2. UPTRAVI [Suspect]
     Active Substance: SELEXIPAG
     Indication: PULMONARY HYPERTENSION
     Dosage: 200 MCG, BID
     Route: 048
  3. OPSUMIT [Suspect]
     Active Substance: MACITENTAN
     Indication: PULMONARY HYPERTENSION
     Dosage: 10 MG, QD
     Route: 048
  4. UPTRAVI [Suspect]
     Active Substance: SELEXIPAG
     Dosage: 1000 MCG, BID
     Route: 048
  5. DILTIAZEM. [Concomitant]
     Active Substance: DILTIAZEM

REACTIONS (14)
  - Catheterisation cardiac [Unknown]
  - Arthralgia [Unknown]
  - Myalgia [Unknown]
  - Unevaluable event [Unknown]
  - Vomiting [Unknown]
  - Weight decreased [Unknown]
  - Hospitalisation [Not Recovered/Not Resolved]
  - Pain in jaw [Unknown]
  - Nausea [Unknown]
  - Condition aggravated [Unknown]
  - Flushing [Unknown]
  - Pulmonary arterial hypertension [Unknown]
  - Decreased appetite [Unknown]
  - Gastrointestinal disorder [Unknown]
